FAERS Safety Report 21965371 (Version 1)
Quarter: 2023Q1

REPORT INFORMATION
  Report Type: Spontaneous
  Country: DE (occurrence: DE)
  Receive Date: 20230208
  Receipt Date: 20230208
  Transmission Date: 20230417
  Serious: Yes (Congenital Anomaly, Other)
  Sender: FDA-Public Use
  Company Number: DE-EMBRYOTOX-202117754

PATIENT
  Age: 1 Day
  Sex: Female
  Weight: 3.94 kg

DRUGS (5)
  1. SUMATRIPTAN [Suspect]
     Active Substance: SUMATRIPTAN
     Indication: Migraine
     Dosage: 100 MILLIGRAM, AS NECESSARY (100 [MG/D ]/ GW 2+6, 5+0, 6+5, 7+6, 9+3, 10+6, 11+1, 12+5, 13+1, 13+5,
     Route: 064
     Dates: start: 20210801, end: 20220104
  2. COMIRNATY [Concomitant]
     Active Substance: TOZINAMERAN
     Indication: COVID-19 immunisation
     Dosage: UNK
     Route: 065
     Dates: start: 20211206, end: 20211206
  3. EUTHYROX [Concomitant]
     Active Substance: LEVOTHYROXINE SODIUM
     Indication: Thyroidectomy
     Dosage: 150 MICROGRAM, ONCE A DAY (150 [?G/D ]/ BECAUSE OF GRAVES^ DISEASE; 150 ?G/D IN THE BEGINNING, INCRE
     Route: 064
     Dates: start: 20210712, end: 20220421
  4. IBUPROFEN [Concomitant]
     Active Substance: IBUPROFEN
     Indication: Migraine
     Dosage: 600 MILLIGRAM, ONCE A DAY
     Route: 064
     Dates: start: 20211021, end: 20211021
  5. VITAMIN D [Concomitant]
     Active Substance: VITAMIN D NOS
     Indication: Vitamin D deficiency
     Dosage: 1000 INTERNATIONAL UNIT, ONCE A DAY
     Route: 064

REACTIONS (3)
  - Ventricular septal defect [Recovered/Resolved]
  - Atrial septal defect [Recovered/Resolved]
  - Foetal exposure during pregnancy [Unknown]

NARRATIVE: CASE EVENT DATE: 20220401
